FAERS Safety Report 10218346 (Version 1)
Quarter: 2014Q2

REPORT INFORMATION
  Report Type: Spontaneous
  Country: JP (occurrence: JP)
  Receive Date: 20140605
  Receipt Date: 20140605
  Transmission Date: 20141212
  Serious: Yes (Hospitalization)
  Sender: FDA-Public Use
  Company Number: JP-AMGEN INC.-JPNSP2014040687

PATIENT
  Age: 38 Year
  Sex: Female

DRUGS (5)
  1. PRALIA [Suspect]
     Indication: OSTEOPOROSIS
     Dosage: UNK
     Route: 058
     Dates: start: 201311
  2. ALFAROL [Concomitant]
     Dosage: 0.25 MUG, QD
     Dates: start: 20140508
  3. ONEALFA [Concomitant]
     Dosage: UNK
     Dates: start: 20140515
  4. ASPARA-CA [Concomitant]
     Dosage: 1200 MG, QD
     Dates: start: 20140524
  5. CALCICOL [Concomitant]
     Route: 042

REACTIONS (1)
  - Hypocalcaemia [Recovering/Resolving]
